FAERS Safety Report 19606642 (Version 1)
Quarter: 2021Q3

REPORT INFORMATION
  Report Type: Spontaneous
  Country: CN (occurrence: CN)
  Receive Date: 20210725
  Receipt Date: 20210725
  Transmission Date: 20211014
  Serious: Yes (Hospitalization)
  Sender: FDA-Public Use
  Company Number: NVSC2021CN165877

PATIENT
  Age: 43 Year
  Sex: Male
  Weight: 78 kg

DRUGS (1)
  1. CARBAMAZEPINE. [Suspect]
     Active Substance: CARBAMAZEPINE
     Indication: BLEPHAROSPASM
     Dosage: 0.1 G, BID
     Route: 048
     Dates: start: 20210706, end: 20210715

REACTIONS (1)
  - Generalised bullous fixed drug eruption [Recovered/Resolved]

NARRATIVE: CASE EVENT DATE: 20210715
